FAERS Safety Report 6890055-7 (Version None)
Quarter: 2010Q3

REPORT INFORMATION
  Report Type: 
  Country: None (occurrence: None)
  Receive Date: 20100730
  Receipt Date: 20080717
  Transmission Date: 20110219
  Serious: No
  Sender: FDA-Public Use
  Company Number: US-PFIZER INC-2008049105

PATIENT
  Sex: Female
  Weight: 86.18 kg

DRUGS (10)
  1. LIPITOR [Suspect]
     Indication: BLOOD CHOLESTEROL INCREASED
     Dates: start: 20080423, end: 20080424
  2. ACETAMINOPHEN [Concomitant]
     Indication: PAIN
     Dosage: 1 TABLET EVERY 4 TO 6 HOURS AS NEEDED
     Route: 048
  3. ACETAMINOPHEN [Concomitant]
     Indication: PYREXIA
  4. NORVASC [Concomitant]
     Route: 048
  5. ACETYLSALICYLIC ACID SRT [Concomitant]
     Route: 048
  6. VITAMINS [Concomitant]
     Dosage: ONE TABLET
     Route: 048
  7. METOPROLOL TARTRATE [Concomitant]
     Route: 048
  8. VALSARTAN [Concomitant]
     Route: 048
  9. FLECAINIDE ACETATE [Concomitant]
     Indication: ATRIAL FIBRILLATION
  10. ALL OTHER THERAPEUTIC PRODUCTS [Concomitant]
     Indication: DYSPEPSIA

REACTIONS (3)
  - ABASIA [None]
  - ASTHENIA [None]
  - MYALGIA [None]
